FAERS Safety Report 10197560 (Version 1)
Quarter: 2014Q2

REPORT INFORMATION
  Report Type: Spontaneous
  Country: US (occurrence: US)
  Receive Date: 20140527
  Receipt Date: 20140527
  Transmission Date: 20141212
  Serious: No
  Sender: FDA-Public Use
  Company Number: US-NOVEN-14US009030

PATIENT
  Sex: Female

DRUGS (3)
  1. MINIVELLE [Suspect]
     Indication: HORMONE REPLACEMENT THERAPY
     Dosage: 0.1 MG/DAY, UNK
     Route: 062
     Dates: start: 201312, end: 201402
  2. PROMETRIUM                         /00110701/ [Concomitant]
     Indication: PRODUCT USED FOR UNKNOWN INDICATION
     Route: 048
  3. LIOTHYRONINE [Concomitant]
     Indication: THYROID DISORDER

REACTIONS (3)
  - Drug ineffective [Recovered/Resolved]
  - Oestradiol decreased [Unknown]
  - Depressed mood [Recovered/Resolved]
